FAERS Safety Report 7484042-8 (Version None)
Quarter: 2011Q1

REPORT INFORMATION
  Report Type: 
  Country: None (occurrence: None)
  Receive Date: 20110309
  Receipt Date: 20110202
  Transmission Date: 20110831
  Serious: No
  Sender: FDA-Public Use
  Company Number: 2011SP005258

PATIENT
  Age: 66 Year
  Sex: Female

DRUGS (6)
  1. GEMFIBROZIL [Concomitant]
  2. VESICARE [Concomitant]
  3. LUVOX [Concomitant]
  4. ALLOPURINOL [Concomitant]
  5. TOFRANIL [Concomitant]
  6. SAPHRIS [Suspect]
     Indication: BIPOLAR DISORDER
     Dosage: 10 MG; SL; 5 MG; SL
     Route: 060
     Dates: start: 20110131

REACTIONS (4)
  - CONFUSIONAL STATE [None]
  - WRONG TECHNIQUE IN DRUG USAGE PROCESS [None]
  - ASTHENIA [None]
  - FATIGUE [None]
